FAERS Safety Report 8696814 (Version 2)
Quarter: 2014Q3

REPORT INFORMATION
  Report Type: Spontaneous
  Country: US (occurrence: US)
  Receive Date: 20120801
  Receipt Date: 20140806
  Transmission Date: 20150326
  Serious: Yes (Hospitalization, Disabling, Other)
  Sender: FDA-Public Use
  Company Number: US-009507513-1207USA008772

PATIENT
  Sex: Female
  Weight: 68.27 kg

DRUGS (2)
  1. AMITRIPTYLINE HYDROCHLORIDE. [Suspect]
     Active Substance: AMITRIPTYLINE HYDROCHLORIDE
     Dosage: 10-20 MG, UNK
  2. NUVARING [Suspect]
     Active Substance: ETHINYL ESTRADIOL\ETONOGESTREL
     Dosage: UNK
     Dates: start: 200611

REACTIONS (12)
  - Vitamin B12 abnormal [Unknown]
  - Urethritis [Unknown]
  - Bacterial vaginosis [Unknown]
  - Pulmonary infarction [Unknown]
  - Pulmonary embolism [Unknown]
  - Pelvic inflammatory disease [Unknown]
  - Anxiety [Unknown]
  - Pelvic pain [Unknown]
  - Coagulopathy [Unknown]
  - Appendicectomy [Unknown]
  - Urinary tract infection [Recovered/Resolved]
  - Cataract [Unknown]

NARRATIVE: CASE EVENT DATE: 20100814
